FAERS Safety Report 7997293-0 (Version None)
Quarter: 2011Q4

REPORT INFORMATION
  Report Type: 
  Country: None (occurrence: None)
  Receive Date: 20111221
  Receipt Date: 20111214
  Transmission Date: 20120403
  Serious: Yes (Other)
  Sender: FDA-Public Use
  Company Number: US-JNJFOC-20110711894

PATIENT
  Sex: Male

DRUGS (8)
  1. LEVAQUIN [Suspect]
     Indication: SINUSITIS
     Route: 048
  2. PREDNISONE [Suspect]
     Indication: SINUS DISORDER
     Route: 048
  3. CLARITIN-D [Concomitant]
     Indication: BRONCHITIS
     Route: 065
  4. CLARITIN-D [Concomitant]
     Indication: SINUS DISORDER
     Route: 065
  5. LEVAQUIN [Suspect]
     Indication: BRONCHITIS
     Route: 048
  6. FLUTICASONE PROPIONATE [Suspect]
     Indication: SINUS DISORDER
     Route: 045
  7. PREDNISONE [Suspect]
     Indication: BRONCHITIS
     Route: 048
  8. FLUTICASONE PROPIONATE [Suspect]
     Indication: BRONCHITIS
     Route: 045

REACTIONS (6)
  - EPICONDYLITIS [None]
  - TENDONITIS [None]
  - POST-TRAUMATIC STRESS DISORDER [None]
  - ROTATOR CUFF SYNDROME [None]
  - ANXIETY [None]
  - DEPRESSION [None]
